FAERS Safety Report 15061168 (Version 1)
Quarter: 2018Q2

REPORT INFORMATION
  Report Type: Spontaneous
  Country: US (occurrence: US)
  Receive Date: 20180625
  Receipt Date: 20180625
  Transmission Date: 20180711
  Serious: No
  Sender: FDA-Public Use
  Company Number: US-ROCHE-1988543

PATIENT
  Age: 53 Year
  Sex: Female

DRUGS (1)
  1. XELODA [Suspect]
     Active Substance: CAPECITABINE
     Indication: RECTAL CANCER
     Dosage: FOR 14 DAYS ON AND 7 DAYS OFF
     Route: 048
     Dates: start: 20170616

REACTIONS (3)
  - Nausea [Unknown]
  - Vomiting [Unknown]
  - Blister [Unknown]

NARRATIVE: CASE EVENT DATE: 20170831
